FAERS Safety Report 4480960-3 (Version None)
Quarter: 2004Q4

REPORT INFORMATION
  Report Type: 
  Country: None (occurrence: None)
  Receive Date: 20041020
  Receipt Date: 20041020
  Transmission Date: 20050328
  Serious: Yes (Other)
  Sender: FDA-Public Use
  Company Number: None

PATIENT
  Age: 48 Year
  Sex: Female
  Weight: 56.6996 kg

DRUGS (8)
  1. D AMPHETAMINE  15 MG CAP SABRR [Suspect]
     Indication: FATIGUE
     Dosage: 15 MG TWICE A DAY ORAL
     Route: 048
     Dates: start: 20031003, end: 20041101
  2. D AMPHETAMINE  15 MG CAP SABRR [Suspect]
     Indication: MAJOR DEPRESSION
     Dosage: 15 MG TWICE A DAY ORAL
     Route: 048
     Dates: start: 20031003, end: 20041101
  3. PROZAC [Concomitant]
  4. WELLBUTRIN SR [Concomitant]
  5. AMBIEN [Concomitant]
  6. XANAX [Concomitant]
  7. ACTONEL [Concomitant]
  8. CALTRATE WITH D [Concomitant]

REACTIONS (3)
  - ASTHENIA [None]
  - DRUG INEFFECTIVE [None]
  - PHARMACEUTICAL PRODUCT COMPLAINT [None]
